FAERS Safety Report 14240067 (Version 1)
Quarter: 2017Q4

REPORT INFORMATION
  Report Type: Spontaneous
  Country: US (occurrence: US)
  Receive Date: 20171130
  Receipt Date: 20171130
  Transmission Date: 20180321
  Serious: No
  Sender: FDA-Public Use
  Company Number: US-HERITAGE PHARMACEUTICALS-2017HTG00043

PATIENT
  Age: 81 Year
  Sex: Female

DRUGS (4)
  1. HYDRALAZINE HYDROCHLORIDE. [Suspect]
     Active Substance: HYDRALAZINE HYDROCHLORIDE
     Indication: HYPERTENSION
     Dosage: 2 TABLETS, 2X/DAY
  2. ADDERALL [Suspect]
     Active Substance: AMPHETAMINE ASPARTATE\AMPHETAMINE SULFATE\DEXTROAMPHETAMINE SACCHARATE\DEXTROAMPHETAMINE SULFATE
  3. UNSPECIFIED OTHER MEDICATIONS [Suspect]
     Active Substance: UNSPECIFIED INGREDIENT
  4. ALLOPURINOL. [Suspect]
     Active Substance: ALLOPURINOL

REACTIONS (2)
  - Asthenia [Unknown]
  - Dizziness [Unknown]
